FAERS Safety Report 11928565 (Version 2)
Quarter: 2016Q1

REPORT INFORMATION
  Report Type: Spontaneous
  Country: CN (occurrence: CN)
  Receive Date: 20160119
  Receipt Date: 20160129
  Transmission Date: 20160526
  Serious: Yes (Death, Hospitalization, Other)
  Sender: FDA-Public Use
  Company Number: CN-GLAXOSMITHKLINE-CN2016GSK000065

PATIENT
  Age: 75 Year
  Sex: Female

DRUGS (1)
  1. SERETIDE [Suspect]
     Active Substance: FLUTICASONE FUROATE\SALMETEROL XINAFOATE
     Indication: ASTHMA
     Dosage: 1 PUFF(S), BID
     Route: 055
     Dates: start: 201503, end: 20160104

REACTIONS (10)
  - Pulmonary function test decreased [Fatal]
  - Cardiomegaly [Fatal]
  - Myocardial ischaemia [Fatal]
  - Overdose [Unknown]
  - Asthma [Fatal]
  - Dysuria [Fatal]
  - Respiratory failure [Fatal]
  - Traumatic lung injury [Fatal]
  - Renal failure [Fatal]
  - Drug ineffective [Unknown]

NARRATIVE: CASE EVENT DATE: 201506
